FAERS Safety Report 25475263 (Version 1)
Quarter: 2025Q2

REPORT INFORMATION
  Report Type: Spontaneous
  Country: CA (occurrence: CA)
  Receive Date: 20250624
  Receipt Date: 20250624
  Transmission Date: 20250717
  Serious: Yes (Other)
  Sender: SANOFI AVENTIS
  Company Number: CA-SA-2025SA177954

PATIENT
  Age: 26 Year
  Sex: Female

DRUGS (7)
  1. VANDETANIB [Suspect]
     Active Substance: VANDETANIB
     Indication: Paraganglion neoplasm malignant
  2. AFINITOR [Suspect]
     Active Substance: EVEROLIMUS
     Indication: Paraganglion neoplasm malignant
  3. CYCLOPHOSPHAMIDE [Suspect]
     Active Substance: CYCLOPHOSPHAMIDE
     Indication: Paraganglion neoplasm malignant
  4. SUNITINIB MALATE [Suspect]
     Active Substance: SUNITINIB MALATE
     Indication: Paraganglion neoplasm malignant
  5. TEMODAL [Suspect]
     Active Substance: TEMOZOLOMIDE
     Indication: Paraganglion neoplasm malignant
  6. TOPOTECAN HYDROCHLORIDE [Suspect]
     Active Substance: TOPOTECAN HYDROCHLORIDE
     Indication: Paraganglion neoplasm malignant
  7. MESNA [Suspect]
     Active Substance: MESNA
     Indication: Phaeochromocytoma
     Route: 042

REACTIONS (8)
  - Pancytopenia [Recovering/Resolving]
  - Metastases to bone [Recovering/Resolving]
  - Metastases to central nervous system [Recovering/Resolving]
  - Metastases to liver [Recovering/Resolving]
  - Insomnia [Recovering/Resolving]
  - Headache [Recovering/Resolving]
  - Off label use [Unknown]
  - Product use in unapproved indication [Unknown]
